FAERS Safety Report 10516390 (Version 1)
Quarter: 2014Q4

REPORT INFORMATION
  Report Type: Spontaneous
  Country: AU (occurrence: AU)
  Receive Date: 20141014
  Receipt Date: 20141014
  Transmission Date: 20150528
  Serious: Yes (Death)
  Sender: FDA-Public Use
  Company Number: AU-MYLANLABS-2014M1007138

PATIENT

DRUGS (5)
  1. OXYCODONE [Suspect]
     Active Substance: OXYCODONE
     Route: 065
  2. DULOXETINE [Suspect]
     Active Substance: DULOXETINE
     Route: 065
  3. CODEINE [Suspect]
     Active Substance: CODEINE
     Route: 065
  4. PARACETAMOL [Suspect]
     Active Substance: ACETAMINOPHEN
     Route: 065
  5. QUETIAPINE [Suspect]
     Active Substance: QUETIAPINE
     Route: 065

REACTIONS (2)
  - Intentional self-injury [Fatal]
  - Toxicity to various agents [Fatal]
